FAERS Safety Report 25999365 (Version 3)
Quarter: 2025Q4

REPORT INFORMATION
  Report Type: Spontaneous
  Country: CN (occurrence: CN)
  Receive Date: 20251105
  Receipt Date: 20251119
  Transmission Date: 20260117
  Serious: Yes (Other)
  Sender: CIPLA
  Company Number: CN-MLMSERVICE-20251020-PI681721-00141-1

PATIENT

DRUGS (1)
  1. EXEMESTANE [Suspect]
     Active Substance: EXEMESTANE
     Indication: Breast cancer
     Dosage: 25 MILLIGRAM, QD (PER DAY), DURATION OF ADMINISTRATION: 13.5 MONTHS
     Route: 048

REACTIONS (1)
  - Cystoid macular oedema [Not Recovered/Not Resolved]
